FAERS Safety Report 8903492 (Version 6)
Quarter: 2013Q1

REPORT INFORMATION
  Report Type: Spontaneous
  Country: US (occurrence: US)
  Receive Date: 20121112
  Receipt Date: 20130328
  Transmission Date: 20140127
  Serious: Yes (Hospitalization, Disabling, Other)
  Sender: FDA-Public Use
  Company Number: US-009507513-1211USA004395

PATIENT
  Sex: Female
  Weight: 69.84 kg

DRUGS (12)
  1. FOSAMAX [Suspect]
     Dosage: 70 MG, QW
     Route: 048
     Dates: start: 20010804, end: 201009
  2. FOSAMAX [Suspect]
     Dosage: 70 MG, QW
     Route: 048
  3. ALENDRONATE SODIUM [Suspect]
     Dosage: 70 MG, QW
     Route: 048
  4. ENBREL [Concomitant]
     Indication: RHEUMATOID ARTHRITIS
     Dosage: UNK
     Dates: start: 1999
  5. SULINDAC [Concomitant]
     Indication: PAIN
     Dosage: UNK
     Dates: start: 20000108
  6. SULINDAC [Concomitant]
     Indication: INFLAMMATION
  7. DEMEROL [Concomitant]
     Indication: MIGRAINE
     Dosage: UNK
     Dates: start: 20000806, end: 20020327
  8. PENLAC [Concomitant]
     Indication: ONYCHOMYCOSIS
     Dosage: 8 % SOLUTION
     Dates: start: 20000922, end: 20061013
  9. METHYLPREDNISOLONE [Concomitant]
     Indication: INFLAMMATION
     Dosage: UNK
     Dates: start: 19990804, end: 20101203
  10. DICLOFENAC [Concomitant]
     Indication: PAIN
     Dosage: UNK
     Dates: start: 20031021, end: 20040217
  11. DICLOFENAC [Concomitant]
     Indication: INFLAMMATION
  12. PREMARIN VAGINAL CREAM [Concomitant]
     Dosage: UNK
     Dates: start: 19991212, end: 20071015

REACTIONS (34)
  - Femur fracture [Not Recovered/Not Resolved]
  - Surgery [Not Recovered/Not Resolved]
  - Pain [Not Recovered/Not Resolved]
  - Femur fracture [Unknown]
  - Intramedullary rod insertion [Unknown]
  - Knee arthroplasty [Unknown]
  - Hip arthroplasty [Unknown]
  - Toe amputation [Unknown]
  - Hip arthroplasty [Unknown]
  - Foot operation [Unknown]
  - Foot operation [Unknown]
  - Cataract operation [Unknown]
  - Foot operation [Unknown]
  - Medical device removal [Unknown]
  - Anaemia postoperative [Unknown]
  - Escherichia urinary tract infection [Unknown]
  - Staphylococcal infection [Unknown]
  - Endodontic procedure [Unknown]
  - Spinal fracture [Unknown]
  - Cellulitis [Unknown]
  - Hypertension [Unknown]
  - Hypothyroidism [Unknown]
  - Osteoarthritis [Unknown]
  - Spinal osteoarthritis [Unknown]
  - Osteomyelitis [Unknown]
  - Cataract [Unknown]
  - Osteoarthritis [Unknown]
  - Radiculitis lumbosacral [Unknown]
  - Muscle atrophy [Unknown]
  - Cellulitis [Recovered/Resolved]
  - Osteoarthritis [Unknown]
  - Intervertebral disc degeneration [Not Recovered/Not Resolved]
  - Fractured sacrum [Unknown]
  - Rheumatoid arthritis [Not Recovered/Not Resolved]
